FAERS Safety Report 24705163 (Version 1)
Quarter: 2024Q4

REPORT INFORMATION
  Report Type: Spontaneous
  Country: US (occurrence: US)
  Receive Date: 20241206
  Receipt Date: 20241206
  Transmission Date: 20250115
  Serious: Yes (Hospitalization, Other)
  Sender: AUROBINDO
  Company Number: US-MLMSERVICE-20241115-PI259026-00326-1

PATIENT
  Age: 60 Year
  Sex: Female

DRUGS (1)
  1. VALACYCLOVIR HYDROCHLORIDE [Suspect]
     Active Substance: VALACYCLOVIR HYDROCHLORIDE
     Indication: Herpes zoster
     Dosage: SHE HAD BEEN PRESCRIBED A 7-DAY COURSE OF VALACYCLOVIR
     Route: 065

REACTIONS (2)
  - Acute kidney injury [Recovering/Resolving]
  - Hallucination, visual [Unknown]
